FAERS Safety Report 17591572 (Version 1)
Quarter: 2020Q1

REPORT INFORMATION
  Report Type: Report from Study
  Country: CA (occurrence: CA)
  Receive Date: 20200327
  Receipt Date: 20200327
  Transmission Date: 20200409
  Serious: Yes (Hospitalization)
  Sender: FDA-Public Use
  Company Number: CA-JNJFOC-20200206681

PATIENT
  Age: 39 Year
  Sex: Female
  Weight: 142 kg

DRUGS (1)
  1. SIMPONI [Suspect]
     Active Substance: GOLIMUMAB
     Indication: PSORIATIC ARTHROPATHY
     Dosage: 284 MG
     Route: 042
     Dates: start: 20180208

REACTIONS (4)
  - Skin infection [Recovered/Resolved]
  - Product use issue [Unknown]
  - Cellulitis staphylococcal [Recovering/Resolving]
  - Off label use [Unknown]

NARRATIVE: CASE EVENT DATE: 20180208
